FAERS Safety Report 25649503 (Version 1)
Quarter: 2025Q3

REPORT INFORMATION
  Report Type: Spontaneous
  Country: GB (occurrence: GB)
  Receive Date: 20250806
  Receipt Date: 20250806
  Transmission Date: 20251020
  Serious: Yes (Other)
  Sender: ALEXION PHARMACEUTICALS
  Company Number: GB-ASTRAZENECA-202508GBR001037GB

PATIENT
  Sex: Female

DRUGS (12)
  1. CALQUENCE [Suspect]
     Active Substance: ACALABRUTINIB
     Indication: Bing-Neel syndrome
     Dosage: 100 MILLIGRAM, BID
     Route: 065
     Dates: start: 202504, end: 202504
  2. Immunoglobulin [Concomitant]
     Dosage: UNK, Q4W
  3. METHOTREXATE [Concomitant]
     Active Substance: METHOTREXATE
  4. ACYCLOVIR [Concomitant]
     Active Substance: ACYCLOVIR
     Dosage: 400 MILLIGRAM, BID
     Route: 065
  5. CALCIUM\VITAMIN D [Concomitant]
     Active Substance: CALCIUM\VITAMIN D
     Route: 065
  6. DEXAMETHASONE [Concomitant]
     Active Substance: DEXAMETHASONE
     Dosage: 1 MILLIGRAM, QD
     Route: 065
  7. LATANOPROST [Concomitant]
     Active Substance: LATANOPROST
     Route: 065
  8. MOVICOL [Concomitant]
     Active Substance: POLYETHYLENE GLYCOL 3350\POTASSIUM CHLORIDE\SODIUM BICARBONATE\SODIUM CHLORIDE
     Route: 065
  9. OMEPRAZOLE [Concomitant]
     Active Substance: OMEPRAZOLE
     Dosage: 20 MILLIGRAM, QD
     Route: 065
  10. SENNA [Concomitant]
     Active Substance: SENNOSIDES
     Dosage: 15 MILLIGRAM, QD
     Route: 065
  11. TIMOLOL [Concomitant]
     Active Substance: TIMOLOL
     Route: 065
  12. UNSPECIFIED INGREDIENT [Suspect]
     Active Substance: UNSPECIFIED INGREDIENT
     Dosage: UNK, Q4W

REACTIONS (3)
  - Bone marrow infiltration [Unknown]
  - Anaemia [Unknown]
  - Monoclonal immunoglobulin present [Unknown]
